FAERS Safety Report 7578998-2 (Version None)
Quarter: 2011Q2

REPORT INFORMATION
  Report Type: 
  Country: None (occurrence: None)
  Receive Date: 20110628
  Receipt Date: 20110621
  Transmission Date: 20111010
  Serious: Yes (Other)
  Sender: FDA-Public Use
  Company Number: CA-AMGEN-CANSP2011031872

PATIENT
  Age: 66 Year
  Sex: Female

DRUGS (7)
  1. NEUPOGEN [Suspect]
     Indication: PRODUCT USED FOR UNKNOWN INDICATION
     Dosage: 1 ML, UNK
     Route: 058
  2. VALACYCLOVIR HYDROCHLORIDE [Suspect]
     Dosage: 500 MG, QD
  3. DEXAMETHASONE [Suspect]
     Dosage: 20 MG, QWK
     Route: 048
  4. PREVACID [Suspect]
     Dosage: 30 MG, QD
     Route: 048
  5. ZOPICLONE [Suspect]
     Dosage: 7 MG, QD
     Route: 048
  6. TOPIRAMATE [Suspect]
     Dosage: 25 MG, QD
  7. REVLIMID [Suspect]
     Dosage: UNK UNK, QCYCLE
     Route: 048

REACTIONS (1)
  - PNEUMONIA [None]
